FAERS Safety Report 24838233 (Version 1)
Quarter: 2025Q1

REPORT INFORMATION
  Report Type: Spontaneous
  Country: US (occurrence: None)
  Receive Date: 20250113
  Receipt Date: 20250113
  Transmission Date: 20250409
  Serious: Yes (Life-Threatening)
  Sender: FDA-CTU
  Company Number: None

PATIENT
  Age: 48 Year
  Sex: Male

DRUGS (12)
  1. AIMOVIG [Suspect]
     Active Substance: ERENUMAB-AOOE
     Indication: Migraine
     Route: 058
     Dates: start: 20230104
  2. ATORVASTATIN [Concomitant]
     Active Substance: ATORVASTATIN
  3. HUMALOG [Concomitant]
     Active Substance: INSULIN LISPRO
  4. JARDIANCE [Concomitant]
     Active Substance: EMPAGLIFLOZIN
  5. PROPRANOLOL HYDROCHLORIDE [Concomitant]
     Active Substance: PROPRANOLOL HYDROCHLORIDE
  6. FAMOTIDINE [Concomitant]
     Active Substance: FAMOTIDINE
  7. CLOPIDOGREL [Concomitant]
     Active Substance: CLOPIDOGREL BISULFATE
  8. LEVETIRACETAM [Concomitant]
     Active Substance: LEVETIRACETAM
  9. INSULIN LISPRO [Concomitant]
     Active Substance: INSULIN LISPRO
  10. SEMGLEE [Concomitant]
  11. LISINOPRIL [Concomitant]
     Active Substance: LISINOPRIL
  12. ZONISAMIDE [Concomitant]
     Active Substance: ZONISAMIDE

REACTIONS (1)
  - Cerebrovascular accident [None]

NARRATIVE: CASE EVENT DATE: 20241229
